FAERS Safety Report 26014309 (Version 3)
Quarter: 2025Q4

REPORT INFORMATION
  Report Type: Spontaneous
  Country: CN (occurrence: CN)
  Receive Date: 20251108
  Receipt Date: 20251120
  Transmission Date: 20260118
  Serious: Yes (Hospitalization)
  Sender: NOVARTIS
  Company Number: CN-002147023-NVSC2025CN170833

PATIENT
  Age: 30 Year
  Sex: Female
  Weight: 53 kg

DRUGS (3)
  1. CARBAMAZEPINE [Suspect]
     Active Substance: CARBAMAZEPINE
     Indication: Epilepsy
     Dosage: 0.4 G, BID
     Route: 048
     Dates: start: 20250328, end: 20251031
  2. PHENOBARBITAL SODIUM [Suspect]
     Active Substance: PHENOBARBITAL SODIUM
     Indication: Epilepsy
     Dosage: 1 DOSAGE FORM, BID
     Route: 048
     Dates: start: 20230201, end: 20251031
  3. ZONISAMIDE [Suspect]
     Active Substance: ZONISAMIDE
     Indication: Epilepsy
     Dosage: 100 UG, BID
     Route: 048
     Dates: start: 20250328, end: 20251031

REACTIONS (8)
  - Dizziness [Not Recovered/Not Resolved]
  - Asthenia [Not Recovered/Not Resolved]
  - Memory impairment [Not Recovered/Not Resolved]
  - Decreased appetite [Unknown]
  - Gamma-glutamyltransferase increased [Unknown]
  - Blood uric acid decreased [Unknown]
  - Electroencephalogram abnormal [Unknown]
  - Insomnia [Unknown]

NARRATIVE: CASE EVENT DATE: 20250328
